FAERS Safety Report 20166893 (Version 2)
Quarter: 2022Q1

REPORT INFORMATION
  Report Type: Spontaneous
  Country: US (occurrence: US)
  Receive Date: 20211209
  Receipt Date: 20220124
  Transmission Date: 20220423
  Serious: No
  Sender: FDA-Public Use
  Company Number: US-PFIZER INC-202101566544

PATIENT
  Sex: Female

DRUGS (1)
  1. ESTRING [Suspect]
     Active Substance: ESTRADIOL
     Indication: Atrophic vulvovaginitis
     Dosage: 2 MG

REACTIONS (4)
  - Vulvovaginal discomfort [Recovered/Resolved]
  - Pollakiuria [Recovered/Resolved]
  - Intentional product misuse [Unknown]
  - Therapeutic product effect incomplete [Unknown]
